FAERS Safety Report 24959454 (Version 2)
Quarter: 2025Q2

REPORT INFORMATION
  Report Type: Report from Study
  Country: US (occurrence: US)
  Receive Date: 20250212
  Receipt Date: 20250501
  Transmission Date: 20250717
  Serious: Yes (Other)
  Sender: TAKEDA
  Company Number: US-TAKEDA-2025TUS014814

PATIENT
  Sex: Female
  Weight: 17 kg

DRUGS (15)
  1. HUMAN IMMUNOGLOBULIN G [Suspect]
     Active Substance: HUMAN IMMUNOGLOBULIN G
     Indication: Immunodeficiency common variable
     Dosage: 10 GRAM, Q4WEEKS
     Dates: start: 20241210
  2. ACETAMINOPHEN [Concomitant]
     Active Substance: ACETAMINOPHEN
  3. EPINEPHRINE [Concomitant]
     Active Substance: EPINEPHRINE
  4. HIZENTRA [Concomitant]
     Active Substance: HUMAN IMMUNOGLOBULIN G
  5. DIGOXIN [Concomitant]
     Active Substance: DIGOXIN
  6. NITROFURANTOIN [Concomitant]
     Active Substance: NITROFURANTOIN
  7. SODIUM CHLORIDE [Concomitant]
     Active Substance: SODIUM CHLORIDE
  8. LIDOCAINE [Concomitant]
     Active Substance: LIDOCAINE
  9. FERROUS SULFATE [Concomitant]
     Active Substance: FERROUS SULFATE
  10. ALDACTONE [Concomitant]
     Active Substance: SPIRONOLACTONE
  11. ENALAPRILAT [Concomitant]
     Active Substance: ENALAPRILAT
  12. FUROSEMIDE [Concomitant]
     Active Substance: FUROSEMIDE
  13. DIPHENHYDRAMINE [Concomitant]
     Active Substance: DIPHENHYDRAMINE
  14. KEPPRA [Concomitant]
     Active Substance: LEVETIRACETAM
  15. ASPIRIN [Concomitant]
     Active Substance: ASPIRIN

REACTIONS (5)
  - Infected fistula [Not Recovered/Not Resolved]
  - Seizure [Unknown]
  - Infusion site infection [Unknown]
  - Wound infection [Unknown]
  - Dyspnoea [Unknown]
